FAERS Safety Report 10243733 (Version 2)
Quarter: 2014Q3

REPORT INFORMATION
  Report Type: Spontaneous
  Country: US (occurrence: None)
  Receive Date: 20140616
  Receipt Date: 20140721
  Transmission Date: 20150326
  Serious: Yes (Other)
  Sender: FDA-Public Use
  Company Number: JPI-P-004111

PATIENT
  Age: 61 Year
  Sex: Female
  Weight: 58.6 kg

DRUGS (32)
  1. XYREM [Suspect]
     Active Substance: SODIUM OXYBATE
     Indication: CATAPLEXY
     Route: 048
     Dates: start: 20080505, end: 200806
  2. DULOXETINE HYDROCHLORIDE (DULOXETINE HYDROCHLORIDE) [Concomitant]
     Active Substance: DULOXETINE HYDROCHLORIDE
  3. CONJUGATED ESTROGENS (ESTROGENS CONJUGATED) [Concomitant]
  4. CARDIZEM (DILTIAZEM) [Concomitant]
  5. TRIAMTERENE AND HYDROCHLOROTHIAZIDE (HYDROCHLOROTHIAZIDE, TRIAMTERENE) [Concomitant]
  6. XYREM [Suspect]
     Active Substance: SODIUM OXYBATE
     Indication: NARCOLEPSY
     Route: 048
     Dates: start: 20080505, end: 200806
  7. OXYGEN (OXYGEN) [Concomitant]
     Active Substance: OXYGEN
  8. PRASUGREL (PRASUGREL) [Concomitant]
     Active Substance: PRASUGREL
  9. SPIRIVA [Concomitant]
     Active Substance: TIOTROPIUM BROMIDE MONOHYDRATE
  10. VITAMIN D (ERGOCALCIFEROL) [Concomitant]
     Active Substance: ERGOCALCIFEROL
  11. TIZANIDINE (TIZANIDINE HYDROCHLORIDE) [Suspect]
     Active Substance: TIZANIDINE HYDROCHLORIDE
     Indication: MUSCLE RELAXANT THERAPY
     Dates: start: 201404, end: 201404
  12. RISEDRONATE SODIUM (RISEDRONATE SODIUM) [Concomitant]
  13. NITROGLYCERINE (GLYCERYL TRINITRATE) [Concomitant]
  14. FISH OIL (FISH OIL) [Concomitant]
     Active Substance: FISH OIL
  15. MECLIZINE (MECLIZINE) [Concomitant]
  16. BUSPIRONE [Concomitant]
     Active Substance: BUSPIRONE HYDROCHLORIDE
  17. HYDROXYCHLOROQUINE (HYDROXYCHLOROQUINE SULFATE) [Concomitant]
  18. ATORVASTATIN CALCIUM (ATORVASTATIN CALCIUM) [Concomitant]
     Active Substance: ATORVASTATIN CALCIUM
  19. OXYCODONE AND ACETAMINOPHEN (OXYCODONE HYDROCHLORIDE, PARACETAMOL) [Concomitant]
  20. TRIAMTERENE (TRIAMTERENE) [Concomitant]
     Active Substance: TRIAMTERENE
  21. ALBUTEROL (SALBUTAMOL SULFATE) [Concomitant]
  22. PRAVASTATIN (PRAVASTATIN SODIUM) [Concomitant]
  23. XYREM [Suspect]
     Active Substance: SODIUM OXYBATE
     Indication: SLEEP DISORDER
     Route: 048
     Dates: start: 20080505, end: 200806
  24. LUBIPROSTONE (LUBIPROSTONE) [Concomitant]
  25. MODAFINIL (MODAFINIL) [Concomitant]
     Active Substance: MODAFINIL
  26. HYDROCODONE (HYDROCODONE) [Concomitant]
     Active Substance: HYDROCODONE
  27. CLONAZEPAM (CLONAZEPAM) [Concomitant]
  28. METOPROLOL SUCCINATE (METOPROLOL SUCCINATE) [Concomitant]
     Active Substance: METOPROLOL SUCCINATE
  29. CYANOCOBALAMIN  W/FOLIC ACID/PYRIDOXINE HCL (CYANOCOBALAMIN W/FOLIC ACID/PYRIDOXINE HCL) [Concomitant]
  30. CARISOPRODOL (CARISOPRODOL) [Concomitant]
     Active Substance: CARISOPRODOL
  31. ASPIRIN (ACETYLSALICYLIC ACID) [Concomitant]
     Active Substance: ASPIRIN
  32. PLAVIX (CLOPIDOGREL BISULFATE) [Concomitant]

REACTIONS (19)
  - Nervousness [None]
  - Alopecia [None]
  - Dizziness [None]
  - Nausea [None]
  - Agitation [None]
  - Spinal fusion surgery [None]
  - Anxiety [None]
  - Initial insomnia [None]
  - Fatigue [None]
  - Dry eye [None]
  - Somnolence [None]
  - Feeling jittery [None]
  - Eye irritation [None]
  - Diarrhoea [None]
  - Decreased appetite [None]
  - Middle insomnia [None]
  - Weight decreased [None]
  - Lip dry [None]
  - Asthenia [None]

NARRATIVE: CASE EVENT DATE: 20080507
